FAERS Safety Report 5913253-5 (Version None)
Quarter: 2008Q4

REPORT INFORMATION
  Report Type: 
  Country: None (occurrence: None)
  Receive Date: 20081008
  Receipt Date: 20081008
  Transmission Date: 20090506
  Serious: Yes (Hospitalization)
  Sender: FDA-Public Use
  Company Number: None

PATIENT
  Age: 51 Year
  Sex: Female
  Weight: 59 kg

DRUGS (9)
  1. VANCOMYCIN [Suspect]
     Indication: ENDOCARDITIS
     Dosage: 1250MG Q 12HR IV
     Route: 042
     Dates: start: 20080927, end: 20080928
  2. GENTAMICIN [Concomitant]
  3. CUBICIN [Concomitant]
  4. HYDROMORPHONE HCL [Concomitant]
  5. VERAPAMIL [Concomitant]
  6. LORAZEPAM [Concomitant]
  7. M.V.I. [Concomitant]
  8. FOLIC ACID [Concomitant]
  9. HALDOL INJECTION [Concomitant]

REACTIONS (4)
  - BLOOD CREATININE INCREASED [None]
  - DRUG LEVEL INCREASED [None]
  - PRODUCT QUALITY ISSUE [None]
  - RENAL FAILURE [None]
